FAERS Safety Report 5223675-6 (Version None)
Quarter: 2007Q1

REPORT INFORMATION
  Report Type: 
  Country: None (occurrence: None)
  Receive Date: 20070125
  Receipt Date: 20070123
  Transmission Date: 20070707
  Serious: Yes (Other)
  Sender: FDA-Public Use
  Company Number: TCI2006A05798

PATIENT
  Age: 75 Year
  Sex: Male

DRUGS (6)
  1. TAKEPRON OD TABLETS [Suspect]
     Indication: GASTRIC ULCER HAEMORRHAGE
     Dosage: 30 MG PER ORAL
     Route: 048
     Dates: start: 20061116
  2. OMEPRAZOLE [Suspect]
     Indication: GASTRIC ULCER HAEMORRHAGE
     Dosage: 40 MG (20 MG, INJECTION)
     Dates: start: 20061111
  3. SIGMART (NICORANIL) (TABLETS) [Concomitant]
  4. PREDNISOLONE [Concomitant]
  5. HALCION (TRIAZOLAM) (TABLETS) [Concomitant]
  6. MUCOSTA (REBAMIPIDE) (TABLETS) [Concomitant]

REACTIONS (4)
  - HAEMATEMESIS [None]
  - PYREXIA [None]
  - RENAL FAILURE ACUTE [None]
  - SHOCK [None]
